FAERS Safety Report 17714531 (Version 1)
Quarter: 2020Q2

REPORT INFORMATION
  Report Type: Spontaneous
  Country: CA (occurrence: CA)
  Receive Date: 20200427
  Receipt Date: 20200427
  Transmission Date: 20200714
  Serious: Yes (Hospitalization, Other)
  Sender: FDA-Public Use
  Company Number: CA-OTSUKA-2020_010408

PATIENT

DRUGS (14)
  1. ARIPIPRAZOLE. [Suspect]
     Active Substance: ARIPIPRAZOLE
     Indication: SCHIZOAFFECTIVE DISORDER DEPRESSIVE TYPE
     Dosage: UNK
     Route: 065
  2. LAMOTRIGINE. [Suspect]
     Active Substance: LAMOTRIGINE
     Indication: PRODUCT USED FOR UNKNOWN INDICATION
     Dosage: 200 MG, UNK
     Route: 065
  3. QUETIAPINE FUMARATE. [Suspect]
     Active Substance: QUETIAPINE FUMARATE
     Dosage: 100 MG, UNK
     Route: 065
  4. ABILIFY [Suspect]
     Active Substance: ARIPIPRAZOLE
     Indication: SCHIZOPHRENIA
     Dosage: UNK
     Route: 048
  5. QUETIAPINE FUMARATE. [Suspect]
     Active Substance: QUETIAPINE FUMARATE
     Indication: PRODUCT USED FOR UNKNOWN INDICATION
     Dosage: 25 MG, UNK
     Route: 065
  6. ARIPIPRAZOLE. [Suspect]
     Active Substance: ARIPIPRAZOLE
     Indication: DEPRESSION
     Dosage: UNK
     Route: 030
  7. LAMICTAL [Suspect]
     Active Substance: LAMOTRIGINE
     Indication: PRODUCT USED FOR UNKNOWN INDICATION
     Dosage: 100 MG, UNK
     Route: 065
  8. ARIPIPRAZOLE. [Suspect]
     Active Substance: ARIPIPRAZOLE
     Indication: SCHIZOPHRENIA
     Dosage: 300 MG, UNK
     Route: 030
  9. ABILIFY [Suspect]
     Active Substance: ARIPIPRAZOLE
     Indication: DEPRESSION
  10. LAMICTAL [Suspect]
     Active Substance: LAMOTRIGINE
     Dosage: 200 MG, UNK
     Route: 065
  11. LAMOTRIGINE. [Suspect]
     Active Substance: LAMOTRIGINE
     Dosage: 100 MG, UNK
     Route: 005
  12. SERTRALINE HYDROCHLORIDE. [Concomitant]
     Active Substance: SERTRALINE HYDROCHLORIDE
     Indication: PRODUCT USED FOR UNKNOWN INDICATION
     Dosage: UNK
     Route: 065
  13. ABILIFY [Suspect]
     Active Substance: ARIPIPRAZOLE
     Indication: SCHIZOAFFECTIVE DISORDER DEPRESSIVE TYPE
     Dosage: UNK
     Route: 065
  14. WELLBUTRIN [Suspect]
     Active Substance: BUPROPION HYDROCHLORIDE
     Indication: PRODUCT USED FOR UNKNOWN INDICATION
     Dosage: UNK
     Route: 065

REACTIONS (7)
  - Infarction [Not Recovered/Not Resolved]
  - Headache [Not Recovered/Not Resolved]
  - Product use in unapproved indication [Unknown]
  - Vertigo [Not Recovered/Not Resolved]
  - Nausea [Not Recovered/Not Resolved]
  - Anxiety [Not Recovered/Not Resolved]
  - Dizziness [Not Recovered/Not Resolved]
